FAERS Safety Report 10476941 (Version 1)
Quarter: 2014Q3

REPORT INFORMATION
  Report Type: Spontaneous
  Country: GB (occurrence: GB)
  Receive Date: 20140926
  Receipt Date: 20140926
  Transmission Date: 20150326
  Serious: Yes (Other)
  Sender: FDA-Public Use
  Company Number: GB-ROCHE-1466128

PATIENT
  Age: 1 Week
  Sex: Female
  Weight: 2.5 kg

DRUGS (5)
  1. GANCICLOVIR [Suspect]
     Active Substance: GANCICLOVIR
     Indication: CONGENITAL CYTOMEGALOVIRUS INFECTION
     Route: 042
     Dates: start: 20140912, end: 20140914
  2. GANCICLOVIR [Suspect]
     Active Substance: GANCICLOVIR
     Indication: CONGENITAL CYTOMEGALOVIRUS INFECTION
     Route: 042
     Dates: start: 20140903, end: 20140912
  3. VITAMIN K [Concomitant]
     Active Substance: PHYTONADIONE
     Indication: COAGULOPATHY
     Route: 065
     Dates: start: 20140907
  4. GENTAMICIN [Concomitant]
     Active Substance: GENTAMICIN
     Indication: SEPSIS NEONATAL
     Route: 065
     Dates: start: 20140831, end: 20140902
  5. URSODEOXYCHOLIC ACID [Concomitant]
     Active Substance: URSODIOL
     Route: 065
     Dates: start: 20140908

REACTIONS (2)
  - Jaundice [Unknown]
  - Liver function test abnormal [Recovering/Resolving]

NARRATIVE: CASE EVENT DATE: 20140912
